FAERS Safety Report 10103398 (Version 1)
Quarter: 2014Q2

REPORT INFORMATION
  Report Type: Spontaneous
  Country: US (occurrence: US)
  Receive Date: 20140424
  Receipt Date: 20140424
  Transmission Date: 20141212
  Serious: No
  Sender: FDA-Public Use
  Company Number: US-BRISTOL-MYERS SQUIBB COMPANY-20395778

PATIENT
  Age: 64 Year
  Sex: Male
  Weight: 88.43 kg

DRUGS (13)
  1. ELIQUIS [Suspect]
     Indication: ARRHYTHMIA
     Dates: start: 201403
  2. CARTIA [Concomitant]
  3. DILTIAZEM HCL [Concomitant]
  4. DIGOXIN [Concomitant]
     Dosage: 1DF:0.25
  5. METOPROLOL SUCCINATE [Concomitant]
  6. FUROSEMIDE [Concomitant]
  7. ZANTAC [Concomitant]
  8. LISINOPRIL [Concomitant]
  9. BUPROPION [Concomitant]
     Dosage: BUPROPION XL
  10. PANTOPRAZOLE [Concomitant]
  11. PROPECIA [Concomitant]
  12. VALIUM [Concomitant]
     Dosage: OCCASIONALLY
  13. HYDROCODONE [Concomitant]
     Dosage: OCCASIONALLY

REACTIONS (2)
  - Wound complication [Unknown]
  - Rash [Unknown]
